FAERS Safety Report 25726965 (Version 3)
Quarter: 2025Q3

REPORT INFORMATION
  Report Type: Report from Study
  Country: US (occurrence: US)
  Receive Date: 20250826
  Receipt Date: 20250916
  Transmission Date: 20251020
  Serious: Yes (Hospitalization)
  Sender: ALNYLAM PHARMACEUTICALS
  Company Number: US-ALNYLAM PHARMACEUTICALS, INC.-ALN-2025-005120

PATIENT

DRUGS (2)
  1. ONPATTRO [Suspect]
     Active Substance: PATISIRAN SODIUM
     Indication: Hereditary neuropathic amyloidosis
     Dosage: 30 MILLIGRAM, Q3W
     Route: 042
     Dates: start: 20220915, end: 20220915
  2. VITAMIN A [Concomitant]
     Active Substance: VITAMIN A
     Indication: Supplementation therapy
     Route: 065

REACTIONS (7)
  - Hypervolaemia [Unknown]
  - Hypertension [Unknown]
  - Neuropathy peripheral [Unknown]
  - Wrong technique in product usage process [Unknown]
  - Discomfort [Unknown]
  - Visual impairment [Unknown]
  - Memory impairment [Unknown]

NARRATIVE: CASE EVENT DATE: 20250101
